FAERS Safety Report 25221104 (Version 5)
Quarter: 2025Q4

REPORT INFORMATION
  Report Type: Spontaneous
  Country: BR (occurrence: BR)
  Receive Date: 20250421
  Receipt Date: 20251230
  Transmission Date: 20260118
  Serious: No
  Sender: AMGEN
  Company Number: BR-AMGEN-BRASP2025074887

PATIENT

DRUGS (1)
  1. PEGFILGRASTIM [Suspect]
     Active Substance: PEGFILGRASTIM
     Indication: Product used for unknown indication
     Dosage: 6 MILLIGRAM ( SERP 0.6ML)
     Route: 065

REACTIONS (1)
  - Needle issue [Unknown]

NARRATIVE: CASE EVENT DATE: 20250401
